FAERS Safety Report 6390027-5 (Version None)
Quarter: 2009Q4

REPORT INFORMATION
  Report Type: 
  Country: None (occurrence: None)
  Receive Date: 20091006
  Receipt Date: 20090925
  Transmission Date: 20100525
  Serious: Yes (Other)
  Sender: FDA-Public Use
  Company Number: AR-WYE-H11213709

PATIENT
  Age: 21 Year
  Sex: Male

DRUGS (2)
  1. ARTANE [Suspect]
     Indication: PARKINSONISM
     Dosage: 10 TABLETS (OVERDOSE AMOUNT 50 MG)
     Route: 048
     Dates: start: 20090916, end: 20090916
  2. ETHANOL [Suspect]
     Dosage: OVERDOSE AMOUNT UNSPECIFIED
     Dates: start: 20090916, end: 20090916

REACTIONS (6)
  - DELIRIUM [None]
  - DRUG ABUSE [None]
  - DRY MOUTH [None]
  - HALLUCINATION [None]
  - MYDRIASIS [None]
  - OVERDOSE [None]
